FAERS Safety Report 7291389-7 (Version None)
Quarter: 2011Q1

REPORT INFORMATION
  Report Type: 
  Country: None (occurrence: None)
  Receive Date: 20110214
  Receipt Date: 20110207
  Transmission Date: 20110831
  Serious: Yes (Other)
  Sender: FDA-Public Use
  Company Number: B0698221A

PATIENT
  Age: 72 Year
  Sex: Female

DRUGS (5)
  1. LEVOTHYROXINE SODIUM [Concomitant]
     Indication: THYROIDECTOMY
     Route: 065
  2. ACICLOVIR [Suspect]
     Dosage: 4000MG PER DAY
     Route: 065
     Dates: start: 20101125
  3. TRAMADOL [Suspect]
     Dosage: 100MG PER DAY
     Route: 065
     Dates: start: 20101125
  4. PARACETAMOL [Concomitant]
     Indication: PAIN
     Route: 065
  5. AMLODIPINE [Concomitant]
     Indication: HYPERTENSION
     Route: 065

REACTIONS (6)
  - HALLUCINATION, VISUAL [None]
  - ALOPECIA [None]
  - NIGHT SWEATS [None]
  - HALLUCINATION, AUDITORY [None]
  - MALAISE [None]
  - INSOMNIA [None]
